FAERS Safety Report 24392858 (Version 1)
Quarter: 2024Q4

REPORT INFORMATION
  Report Type: Spontaneous
  Country: US (occurrence: US)
  Receive Date: 20241003
  Receipt Date: 20241003
  Transmission Date: 20250114
  Serious: No
  Sender: PRASCO
  Company Number: US-Prasco Laboratories-PRAS20241177

PATIENT
  Age: 68 Year
  Sex: Female

DRUGS (2)
  1. ESTRADIOL [Suspect]
     Active Substance: ESTRADIOL
     Indication: Atrophic vulvovaginitis
     Dosage: 1.5 G, 1 G, 1.25 G OR 0.5 G
     Route: 067
     Dates: start: 20240327, end: 20240706
  2. ESTRADIOL [Suspect]
     Active Substance: ESTRADIOL
     Indication: Menopausal symptoms

REACTIONS (8)
  - Ophthalmic migraine [Recovered/Resolved]
  - Visual impairment [Recovered/Resolved]
  - Speech disorder [Recovered/Resolved]
  - Nausea [Recovered/Resolved]
  - Headache [Recovered/Resolved]
  - Anal incontinence [Recovered/Resolved]
  - Product use issue [None]
  - Off label use [None]

NARRATIVE: CASE EVENT DATE: 20240101
